FAERS Safety Report 17516222 (Version 1)
Quarter: 2020Q1

REPORT INFORMATION
  Report Type: Report from Study
  Country: DE (occurrence: DE)
  Receive Date: 20200309
  Receipt Date: 20200309
  Transmission Date: 20200409
  Serious: Yes (Hospitalization)
  Sender: FDA-Public Use
  Company Number: DE-MYLANLABS-2020M1023142

PATIENT
  Age: 56 Year
  Sex: Female
  Weight: 110 kg

DRUGS (10)
  1. CANDESARTAN. [Suspect]
     Active Substance: CANDESARTAN
     Indication: HYPERTENSION
     Dosage: 16 UNK, QD
     Route: 048
     Dates: start: 2016, end: 20190701
  2. REPATHA [Suspect]
     Active Substance: EVOLOCUMAB
     Dosage: 140 MILLIGRAM, Q2WK
     Route: 058
     Dates: start: 20190818, end: 20190913
  3. TORASEMID [Concomitant]
     Active Substance: TORSEMIDE
     Dosage: 5 UNK
     Dates: start: 2018
  4. VALSARTAN. [Concomitant]
     Active Substance: VALSARTAN
     Dosage: 160 UNK
     Dates: start: 2016, end: 2019
  5. REPATHA [Suspect]
     Active Substance: EVOLOCUMAB
     Indication: HYPERCHOLESTEROLAEMIA
     Dosage: 140 MILLIGRAM, Q2WK
     Route: 058
     Dates: start: 20190416, end: 20190625
  6. ASPIRIN. [Concomitant]
     Active Substance: ASPIRIN
     Dosage: 100 UNK
     Dates: start: 2016
  7. BISOPROLOL [Concomitant]
     Active Substance: BISOPROLOL
     Indication: HYPERTENSION
     Dosage: 5 UNK, QD
     Route: 048
     Dates: start: 2016, end: 20190913
  8. METOPROLOL. [Concomitant]
     Active Substance: METOPROLOL
     Dosage: 47.5 UNK
     Dates: start: 20190914
  9. MIRTAZAPIN [Concomitant]
     Active Substance: MIRTAZAPINE
     Indication: DEPRESSION
     Dosage: 30 UNK, QD
     Route: 048
  10. METFORMIN [Concomitant]
     Active Substance: METFORMIN HYDROCHLORIDE
     Indication: TYPE 2 DIABETES MELLITUS
     Dosage: 1000 UNK, BID
     Route: 048
     Dates: start: 2017

REACTIONS (2)
  - Cholelithiasis [Not Recovered/Not Resolved]
  - Liver function test abnormal [Recovering/Resolving]

NARRATIVE: CASE EVENT DATE: 20190625
